FAERS Safety Report 4423331-8 (Version None)
Quarter: 2004Q3

REPORT INFORMATION
  Report Type: 
  Country: None (occurrence: None)
  Receive Date: 20040805
  Receipt Date: 20040722
  Transmission Date: 20050211
  Serious: Yes (Hospitalization, Other)
  Sender: FDA-Public Use
  Company Number: 04-000451

PATIENT
  Age: 34 Year
  Sex: Female
  Weight: 63.5 kg

DRUGS (1)
  1. OVCON 35 28 DAY TREATMENT (ETHINYLESTRADIOL, NORETHINDRONE) TABLET, 35 [Suspect]
     Indication: MENSTRUATION IRREGULAR
     Dosage: 35/400 UG, QD, ORAL
     Route: 048
     Dates: start: 20030701, end: 20030801

REACTIONS (3)
  - CONVULSION [None]
  - PANCREATITIS [None]
  - VOMITING [None]
